FAERS Safety Report 9827140 (Version 1)
Quarter: 2013Q4

REPORT INFORMATION
  Report Type: Spontaneous
  Country: US (occurrence: None)
  Receive Date: 20131223
  Receipt Date: 20131223
  Transmission Date: 20140711
  Serious: No
  Sender: FDA-Public Use
  Company Number: 220976LEO

PATIENT
  Age: 63 Year
  Sex: Female

DRUGS (5)
  1. PICATO [Suspect]
     Indication: ACTINIC KERATOSIS
     Dates: start: 20130314
  2. ANTI ALLERGY [Concomitant]
  3. STRATTERA [Concomitant]
  4. CHOLESTEROL [Concomitant]
  5. ESTRADIOL [Concomitant]

REACTIONS (2)
  - Application site erythema [None]
  - Application site erythema [None]
